FAERS Safety Report 25049185 (Version 2)
Quarter: 2025Q1

REPORT INFORMATION
  Report Type: Report from Study
  Country: US (occurrence: US)
  Receive Date: 20250307
  Receipt Date: 20250311
  Transmission Date: 20250409
  Serious: Yes (Other)
  Sender: UCB
  Company Number: US-UCBSA-2025012736

PATIENT
  Age: 16 Year
  Sex: Male
  Weight: 51.9 kg

DRUGS (2)
  1. FINTEPLA [Suspect]
     Active Substance: FENFLURAMINE
     Indication: Lennox-Gastaut syndrome
     Dates: start: 20230911
  2. FINTEPLA [Suspect]
     Active Substance: FENFLURAMINE
     Dosage: 4.5 MILLILITER, 2X/DAY (BID)

REACTIONS (1)
  - Mitral valve incompetence [Not Recovered/Not Resolved]

NARRATIVE: CASE EVENT DATE: 20250203
